FAERS Safety Report 6441725-6 (Version None)
Quarter: 2009Q4

REPORT INFORMATION
  Report Type: 
  Country: None (occurrence: None)
  Receive Date: 20091116
  Receipt Date: 20091104
  Transmission Date: 20100525
  Serious: Yes (Other)
  Sender: FDA-Public Use
  Company Number: DE-CELGENEUS-062-20785-09110322

PATIENT
  Sex: Male
  Weight: 108 kg

DRUGS (5)
  1. THALIDOMIDE CELGENE [Suspect]
     Indication: MULTIPLE MYELOMA
     Route: 048
     Dates: start: 20061201, end: 20080722
  2. THALIDOMIDE CELGENE [Suspect]
     Route: 048
     Dates: start: 20080723, end: 20091103
  3. LAXOBERAL [Concomitant]
     Route: 065
  4. LUMIGAN [Concomitant]
     Indication: GLAUCOMA
  5. EXFORGE [Concomitant]
     Indication: HYPERTENSION
     Dosage: 5MG/80MG
     Route: 065
     Dates: start: 20090701

REACTIONS (1)
  - VITH NERVE PARALYSIS [None]
